FAERS Safety Report 24564118 (Version 2)
Quarter: 2024Q4

REPORT INFORMATION
  Report Type: Report from Study
  Country: EG (occurrence: EG)
  Receive Date: 20241030
  Receipt Date: 20241031
  Transmission Date: 20250114
  Serious: Yes (Hospitalization, Other)
  Sender: SANDOZ
  Company Number: EG-SANDOZ-SDZ2024EG047838

PATIENT
  Age: 21 Year
  Sex: Female

DRUGS (1)
  1. HYRIMOZ [Suspect]
     Active Substance: ADALIMUMAB-ADAZ
     Indication: Crohn^s disease
     Dosage: 40 MG, QW
     Route: 058
     Dates: start: 20240420

REACTIONS (7)
  - Diarrhoea [Unknown]
  - Haematochezia [Unknown]
  - Malaise [Not Recovered/Not Resolved]
  - Product dispensing issue [Unknown]
  - Product dose omission issue [Unknown]
  - Product packaging issue [Unknown]
  - Product packaging quantity issue [Unknown]

NARRATIVE: CASE EVENT DATE: 20240504
